FAERS Safety Report 9820601 (Version 1)
Quarter: 2013Q4

REPORT INFORMATION
  Report Type: Spontaneous
  Country: US (occurrence: None)
  Receive Date: 20131028
  Receipt Date: 20131028
  Transmission Date: 20140711
  Serious: Yes (Other)
  Sender: FDA-Public Use
  Company Number: 2013US001645

PATIENT
  Age: 79 Year
  Sex: Female
  Weight: 70 kg

DRUGS (12)
  1. ICLUSIG [Suspect]
     Indication: CHRONIC MYELOID LEUKAEMIA
     Route: 048
     Dates: start: 20130222, end: 20130415
  2. PLAVIX (CLOPIDOGREL BISULFATE) [Concomitant]
  3. CRESTOR (ROSUVASTATIN CALCIUM) [Concomitant]
  4. LEVOTHYROXINE (LEVOTHYROXINE) [Concomitant]
  5. FUROSEMIDE (FUROSEMIDE) [Concomitant]
  6. TOPROL (METOPROLOL SUCCINATE) [Concomitant]
  7. DIGOXIN (DIGOXIN) [Concomitant]
  8. CENTRUM SILVER (ASCORBIC ACID, CALCIUM, MINERALS NOS, RETINOL, TOCOPHERYL ACETATE, VITAMIN B NOS, VITAMINS NOS, ZINC) [Concomitant]
  9. DEXILANT (DEXLANSOPRAZOLE) [Concomitant]
  10. GABAPENTIN (GABAPENTIN) [Concomitant]
  11. ACTONEL (RISEDRONATE SODIUM) [Concomitant]
  12. CHLORODITRIN [Concomitant]

REACTIONS (1)
  - Urticaria [None]
